FAERS Safety Report 13316842 (Version 1)
Quarter: 2017Q1

REPORT INFORMATION
  Report Type: Spontaneous
  Country: GB (occurrence: GB)
  Receive Date: 20170310
  Receipt Date: 20170310
  Transmission Date: 20170428
  Serious: Yes (Hospitalization, Other)
  Sender: FDA-Public Use
  Company Number: GB-009507513-1703GBR002735

PATIENT
  Age: 15 Year
  Sex: Female

DRUGS (1)
  1. NEXPLANON [Suspect]
     Active Substance: ETONOGESTREL
     Dosage: 1 DF, FOR 3 YEARS (DATE OF REMOVAL: 11-NOV-2018)
     Route: 059
     Dates: start: 20151111

REACTIONS (8)
  - Therapeutic response unexpected [Unknown]
  - Autoimmune disorder [Unknown]
  - Amenorrhoea [Unknown]
  - Malaise [Unknown]
  - Anxiety [Unknown]
  - Hypomenorrhoea [Unknown]
  - Mood swings [Unknown]
  - Menstruation irregular [Unknown]

NARRATIVE: CASE EVENT DATE: 201610
